FAERS Safety Report 5538424-1 (Version None)
Quarter: 2007Q4

REPORT INFORMATION
  Report Type: 
  Country: None (occurrence: None)
  Receive Date: 20071205
  Receipt Date: 20071121
  Transmission Date: 20080405
  Serious: Yes (Death)
  Sender: FDA-Public Use
  Company Number: POMP-10904

PATIENT
  Age: 5 Year
  Sex: Female

DRUGS (2)
  1. MYOZYME [Suspect]
     Indication: GLYCOGEN STORAGE DISEASE TYPE II
     Dosage: 20 MG Q2WKS IV
     Route: 042
     Dates: start: 20061003, end: 20061130
  2. AMOXICILLIN [Concomitant]

REACTIONS (5)
  - CARDIO-RESPIRATORY ARREST [None]
  - CYANOSIS [None]
  - DYSPNOEA [None]
  - MYDRIASIS [None]
  - NASOPHARYNGITIS [None]
